FAERS Safety Report 10471849 (Version 5)
Quarter: 2015Q4

REPORT INFORMATION
  Report Type: Spontaneous
  Country: US (occurrence: US)
  Receive Date: 20140924
  Receipt Date: 20151111
  Transmission Date: 20160304
  Serious: Yes (Other)
  Sender: FDA-Public Use
  Company Number: US-UCBSA-2014011980

PATIENT
  Age: 25 Year
  Sex: Female
  Weight: 58.96 kg

DRUGS (13)
  1. VIMPAT [Suspect]
     Active Substance: LACOSAMIDE
     Dosage: 200 MG, 2X/DAY (BID), NIGHTLY AT BED TIME, REDUCED
  2. PHENYTOIN. [Suspect]
     Active Substance: PHENYTOIN
     Indication: SEIZURE
  3. ETHOSUXIMIDE. [Suspect]
     Active Substance: ETHOSUXIMIDE
     Indication: EPILEPSY
     Dosage: 2 DF, 2X/DAY (BID), STRENGTH: 250 MG
  4. PRENATAL VITAMINS [Concomitant]
     Active Substance: VITAMINS
     Indication: PRODUCT USED FOR UNKNOWN INDICATION
     Dosage: UNK, ONCE DAILY (QD)
     Route: 048
  5. CLOBAZAM [Suspect]
     Active Substance: CLOBAZAM
     Indication: SEIZURE
     Dosage: MAXIMUM DOSAGE 30 PER DAY
  6. VIMPAT [Suspect]
     Active Substance: LACOSAMIDE
     Indication: SEIZURE
     Dosage: 700 MG, UNK
  7. KEPPRA [Suspect]
     Active Substance: LEVETIRACETAM
     Dosage: 200 MG IN AM AND 100 MG IN PM
     Route: 048
  8. LAMICTAL [Suspect]
     Active Substance: LAMOTRIGINE
     Indication: SEIZURE
     Dosage: TITRATED DOSE
  9. KEPPRA [Suspect]
     Active Substance: LEVETIRACETAM
     Indication: SEIZURE
     Dosage: UNK, 1000 MG 2.5 DAILY
  10. DEPAKOTE [Suspect]
     Active Substance: DIVALPROEX SODIUM
     Indication: SEIZURE
     Dosage: STRENGTH: 250 MG, 3 NIGHTLY AT BED TIME AND 4 NIGHTLY DURING MENSES
  11. ZONISAMIDE. [Suspect]
     Active Substance: ZONISAMIDE
     Indication: SEIZURE
     Dosage: MAXIMUM DOSE 400 MG PER DAY
  12. TOPIRAMATE. [Suspect]
     Active Substance: TOPIRAMATE
     Indication: SEIZURE
     Dosage: BRIF TRIAL IN LOW DOSES
  13. FOLIC ACID. [Concomitant]
     Active Substance: FOLIC ACID
     Indication: PRODUCT USED FOR UNKNOWN INDICATION
     Dosage: 2 DF, 2X/DAY (BID), STRENGTH: 1 MG

REACTIONS (16)
  - Loss of consciousness [Not Recovered/Not Resolved]
  - Hot flush [Unknown]
  - Overdose [Unknown]
  - Off label use [Unknown]
  - Fatigue [Unknown]
  - Nausea [Unknown]
  - Pregnancy [Unknown]
  - Dyspepsia [Unknown]
  - Decreased appetite [Unknown]
  - Alopecia [Unknown]
  - Postictal state [Unknown]
  - Generalised tonic-clonic seizure [Unknown]
  - Seizure [Recovered/Resolved]
  - Somnolence [Unknown]
  - Breast feeding [Unknown]
  - Memory impairment [Recovering/Resolving]

NARRATIVE: CASE EVENT DATE: 201110
